FAERS Safety Report 4387775-5 (Version None)
Quarter: 2004Q2

REPORT INFORMATION
  Report Type: 
  Country: None (occurrence: None)
  Receive Date: 20040623
  Receipt Date: 20040608
  Transmission Date: 20050107
  Serious: Yes (Other)
  Sender: FDA-Public Use
  Company Number: USA040669578

PATIENT
  Age: 86 Year
  Sex: Male

DRUGS (3)
  1. FORTEO [Suspect]
     Indication: OSTEOARTHRITIS
     Dosage: 20 UG DAY
     Dates: start: 20040401
  2. NORVASC [Concomitant]
  3. PENTA-TRIAMTERENE HCTZ [Concomitant]

REACTIONS (4)
  - BLOOD PRESSURE DIASTOLIC DECREASED [None]
  - CEREBROVASCULAR DISORDER [None]
  - DIZZINESS [None]
  - HEART RATE DECREASED [None]
